FAERS Safety Report 5510720-3 (Version None)
Quarter: 2007Q4

REPORT INFORMATION
  Report Type: 
  Country: None (occurrence: None)
  Receive Date: 20071108
  Receipt Date: 20071106
  Transmission Date: 20080405
  Serious: Yes (Death, Life-Threatening, Disabling)
  Sender: FDA-Public Use
  Company Number: A0691734A

PATIENT
  Age: 41 Year
  Sex: Female

DRUGS (2)
  1. LAMICTAL [Suspect]
     Indication: BIPOLAR DISORDER
     Route: 048
     Dates: start: 20070101, end: 20071001
  2. SEROQUEL [Concomitant]
     Dosage: 200MG UNKNOWN

REACTIONS (2)
  - HEART RATE INCREASED [None]
  - MYOCARDIAL INFARCTION [None]
